FAERS Safety Report 7301649-9 (Version None)
Quarter: 2011Q1

REPORT INFORMATION
  Report Type: 
  Country: None (occurrence: None)
  Receive Date: 20110218
  Receipt Date: 20110216
  Transmission Date: 20110831
  Serious: Yes (Other)
  Sender: FDA-Public Use
  Company Number: DE-SANOFI-AVENTIS-2011SA009894

PATIENT
  Age: 57 Year
  Sex: Female

DRUGS (2)
  1. TAXOTERE [Suspect]
     Route: 041
     Dates: start: 20110101, end: 20110101
  2. OTHER CHEMOTHERAPEUTICS [Concomitant]
     Dates: start: 20110101, end: 20110101

REACTIONS (2)
  - PARAPARESIS [None]
  - MUSCLE ATROPHY [None]
